FAERS Safety Report 8354408-2 (Version None)
Quarter: 2012Q2

REPORT INFORMATION
  Report Type: 
  Country: None (occurrence: None)
  Receive Date: 20120511
  Receipt Date: 20120501
  Transmission Date: 20120825
  Serious: Yes (Other)
  Sender: FDA-Public Use
  Company Number: US-JNJFOC-20120502163

PATIENT
  Sex: Male
  Weight: 79.83 kg

DRUGS (1)
  1. REMICADE [Suspect]
     Indication: AUTOIMMUNE RETINOPATHY
     Route: 042
     Dates: start: 20100101

REACTIONS (3)
  - THYROID NEOPLASM [None]
  - ROAD TRAFFIC ACCIDENT [None]
  - POST-TRAUMATIC NECK SYNDROME [None]
